FAERS Safety Report 9430606 (Version 1)
Quarter: 2013Q3

REPORT INFORMATION
  Report Type: Spontaneous
  Country: JP (occurrence: None)
  Receive Date: 20130726
  Receipt Date: 20130726
  Transmission Date: 20140515
  Serious: Yes (Hospitalization)
  Sender: FDA-Public Use
  Company Number: TCI2012A04468

PATIENT
  Age: 63 Year
  Sex: Male

DRUGS (9)
  1. LANSOPRAZOLE [Suspect]
     Indication: GASTRIC ULCER
     Route: 048
     Dates: start: 20120331, end: 20120806
  2. LANSOPRAZOLE [Suspect]
     Indication: DUODENAL ULCER
     Route: 048
     Dates: start: 20120331, end: 20120806
  3. LANSOPRAZOLE [Suspect]
     Indication: DISEASE RECURRENCE
     Route: 048
     Dates: start: 20120331, end: 20120806
  4. LANSOPRAZOLE [Suspect]
     Indication: PROPHYLAXIS
     Route: 048
     Dates: start: 20120331, end: 20120806
  5. BAYASPIRIN (ACETYLSALICYLIC ACID) [Concomitant]
  6. NORVASC OD (AMLODIPINE BESILATE) [Concomitant]
  7. OLMETEC (OLMESARTAN MEDOXOMIL) [Concomitant]
  8. MUCODYNE (CARBOCISTEINE) [Concomitant]
  9. ALLERMIST (FLUTICASONE FUROATE) (FLUTICASONE) [Concomitant]

REACTIONS (10)
  - Renal failure acute [None]
  - Prostatitis [None]
  - Liver abscess [None]
  - Weight increased [None]
  - Blood pressure decreased [None]
  - Glomerulonephritis [None]
  - Haemodialysis [None]
  - Polyuria [None]
  - Hepatic cyst [None]
  - Renal cyst [None]
